FAERS Safety Report 13643808 (Version 2)
Quarter: 2017Q2

REPORT INFORMATION
  Report Type: Spontaneous
  Country: US (occurrence: US)
  Receive Date: 20170612
  Receipt Date: 20170612
  Transmission Date: 20170830
  Serious: Yes (Death)
  Sender: FDA-Public Use
  Company Number: US-CELGENEUS-USA-20170600874

PATIENT
  Age: 73 Year

DRUGS (2)
  1. VIDAZA [Suspect]
     Active Substance: AZACITIDINE
     Indication: ACUTE MYELOID LEUKAEMIA
     Dosage: 75 MILLIGRAM/SQ. METER/D
     Route: 058
  2. RIGOSERTIB [Suspect]
     Active Substance: RIGOSERTIB
     Indication: ACUTE MYELOID LEUKAEMIA
     Dosage: 560MG + 280 MG
     Route: 048

REACTIONS (2)
  - Treatment failure [Unknown]
  - Death [Fatal]
